FAERS Safety Report 5335923-2 (Version None)
Quarter: 2007Q1

REPORT INFORMATION
  Report Type: 
  Country: None (occurrence: None)
  Receive Date: 20070302
  Receipt Date: 20070119
  Transmission Date: 20070707
  Serious: No
  Sender: FDA-Public Use
  Company Number: PHEH2007US00541

PATIENT
  Age: 59 Year
  Sex: Male
  Weight: 67.6 kg

DRUGS (5)
  1. EXJADE [Suspect]
     Indication: IRON OVERLOAD
     Dosage: 1250 MG, QD, ORAL
     Route: 048
     Dates: start: 20061227, end: 20070103
  2. FLOMAX [Concomitant]
  3. EVOXAC [Concomitant]
  4. CALTRATE (CALCIUM CARBONATE) [Concomitant]
  5. PREVACID [Concomitant]

REACTIONS (4)
  - ERYTHEMA [None]
  - HERPES ZOSTER [None]
  - MUSCULOSKELETAL DISCOMFORT [None]
  - RASH VESICULAR [None]
